FAERS Safety Report 8067343-4 (Version None)
Quarter: 2012Q1

REPORT INFORMATION
  Report Type: 
  Country: None (occurrence: None)
  Receive Date: 20120124
  Receipt Date: 20120119
  Transmission Date: 20120608
  Serious: Yes (Other)
  Sender: FDA-Public Use
  Company Number: JP-GLAXOSMITHKLINE-B0776974A

PATIENT

DRUGS (1)
  1. PROMACTA [Suspect]
     Route: 048

REACTIONS (2)
  - PARALYSIS [None]
  - HYPOAESTHESIA [None]
